FAERS Safety Report 25159244 (Version 1)
Quarter: 2025Q2

REPORT INFORMATION
  Report Type: Spontaneous
  Country: JP (occurrence: JP)
  Receive Date: 20250404
  Receipt Date: 20250404
  Transmission Date: 20250716
  Serious: No
  Sender: ALKEM
  Company Number: JP-ALKEM LABORATORIES LIMITED-JP-ALKEM-2024-06711

PATIENT
  Age: 51 Year
  Sex: Female

DRUGS (6)
  1. ARIPIPRAZOLE [Suspect]
     Active Substance: ARIPIPRAZOLE
     Indication: Burning mouth syndrome
     Route: 065
  2. AMITRIPTYLINE [Suspect]
     Active Substance: AMITRIPTYLINE
     Indication: Burning mouth syndrome
     Route: 065
  3. AMITRIPTYLINE [Suspect]
     Active Substance: AMITRIPTYLINE
     Route: 065
  4. CLONAZEPAM [Suspect]
     Active Substance: CLONAZEPAM
     Indication: Burning mouth syndrome
     Route: 065
  5. MIRTAZAPINE [Suspect]
     Active Substance: MIRTAZAPINE
     Indication: Burning mouth syndrome
     Route: 065
  6. VALPROATE [Suspect]
     Active Substance: VALPROIC ACID
     Indication: Burning mouth syndrome
     Route: 065

REACTIONS (1)
  - Treatment failure [Unknown]
